FAERS Safety Report 25116736 (Version 3)
Quarter: 2025Q2

REPORT INFORMATION
  Report Type: Spontaneous
  Country: DE (occurrence: DE)
  Receive Date: 20250325
  Receipt Date: 20250502
  Transmission Date: 20250716
  Serious: Yes (Hospitalization)
  Sender: CHIESI
  Company Number: DE-CHIESI-2025CHF01857

PATIENT
  Age: 31 Year
  Sex: Female
  Weight: 62 kg

DRUGS (3)
  1. LAMZEDE [Suspect]
     Active Substance: VELMANASE ALFA-TYCV
     Indication: Alpha-mannosidosis
     Dosage: 60 MILLIGRAM, QW
     Route: 042
     Dates: start: 20191001
  2. LAMZEDE [Suspect]
     Active Substance: VELMANASE ALFA-TYCV
     Dates: start: 20250326
  3. CETIRIZINE [Concomitant]
     Active Substance: CETIRIZINE HYDROCHLORIDE
     Indication: Premedication
     Dosage: 10 MILLIGRAM, QW
     Dates: start: 20191001

REACTIONS (3)
  - Arthropathy [Not Recovered/Not Resolved]
  - Product dose omission issue [Not Recovered/Not Resolved]
  - Off label use [Not Recovered/Not Resolved]

NARRATIVE: CASE EVENT DATE: 20191001
